FAERS Safety Report 9364701 (Version 1)
Quarter: 2013Q2

REPORT INFORMATION
  Report Type: Spontaneous
  Country: CA (occurrence: CA)
  Receive Date: 20130624
  Receipt Date: 20130624
  Transmission Date: 20140414
  Serious: No
  Sender: FDA-Public Use
  Company Number: CA-TEVA-413020USA

PATIENT
  Age: 21 Year
  Sex: Female

DRUGS (1)
  1. PLAN B ONE-STEP [Suspect]
     Indication: CONTRACEPTION
     Route: 048
     Dates: start: 20130608, end: 20130608

REACTIONS (1)
  - Metrorrhagia [Not Recovered/Not Resolved]
